FAERS Safety Report 23915474 (Version 1)
Quarter: 2024Q2

REPORT INFORMATION
  Report Type: Spontaneous
  Country: US (occurrence: US)
  Receive Date: 20240529
  Receipt Date: 20240529
  Transmission Date: 20240716
  Serious: No
  Sender: FDA-Public Use
  Company Number: US-ELI_LILLY_AND_COMPANY-US202405016447

PATIENT
  Age: 37 Year
  Sex: Female

DRUGS (2)
  1. OMVOH [Suspect]
     Active Substance: MIRIKIZUMAB-MRKZ
     Indication: Product used for unknown indication
     Dosage: UNK UNK, UNKNOWN
     Route: 065
     Dates: start: 20240417
  2. OMVOH [Suspect]
     Active Substance: MIRIKIZUMAB-MRKZ
     Dosage: UNK UNK, UNKNOWN
     Route: 065
     Dates: start: 20240515

REACTIONS (4)
  - Infusion site swelling [Recovered/Resolved]
  - Infusion site pruritus [Unknown]
  - Infusion site urticaria [Unknown]
  - Infusion site exfoliation [Unknown]

NARRATIVE: CASE EVENT DATE: 20240417
